FAERS Safety Report 10009482 (Version 2)
Quarter: 2014Q1

REPORT INFORMATION
  Report Type: Spontaneous
  Country: US (occurrence: US)
  Receive Date: 20140313
  Receipt Date: 20140313
  Transmission Date: 20141002
  Serious: No
  Sender: FDA-Public Use
  Company Number: US-INCYTE CORPORATION-2012IN001272

PATIENT
  Age: 70 Year
  Sex: Male

DRUGS (7)
  1. JAKAFI [Suspect]
     Indication: MYELOFIBROSIS
     Dosage: 20 MG, BID
     Route: 048
     Dates: start: 20120614, end: 20120801
  2. JAKAFI [Suspect]
     Dosage: 10 MG, BID
     Route: 048
     Dates: start: 20120802
  3. REPAFLO [Concomitant]
  4. ULORIC [Concomitant]
  5. PROPAFENONE [Concomitant]
  6. CIPROFLOXACIN [Concomitant]
  7. MULTIVITAMIN [Concomitant]

REACTIONS (6)
  - Anxiety [Unknown]
  - Feeling jittery [Unknown]
  - Fatigue [Unknown]
  - Anaemia [Unknown]
  - Haematocrit decreased [Unknown]
  - Dizziness [Unknown]
